FAERS Safety Report 9234206 (Version 3)
Quarter: 2014Q4

REPORT INFORMATION
  Report Type: Report from Study
  Country: GB (occurrence: GB)
  Receive Date: 20130416
  Receipt Date: 20141222
  Transmission Date: 20150529
  Serious: Yes (Hospitalization)
  Sender: FDA-Public Use
  Company Number: GB-ROCHE-1214584

PATIENT
  Sex: Female
  Weight: 54 kg

DRUGS (2)
  1. METHOTREXATE [Concomitant]
     Active Substance: METHOTREXATE
  2. RITUXIMAB [Suspect]
     Active Substance: RITUXIMAB
     Indication: RHEUMATOID ARTHRITIS
     Dosage: ON 31/AUG/2011, LAST DOSE PRIOR TO EVENTS AORTIC INCOMPETENCE, ATRIAL FIBRILLATION WAS RECEIVED.?ON
     Route: 065
     Dates: start: 20090610

REACTIONS (6)
  - Atrial fibrillation [Unknown]
  - Lower respiratory tract infection [Recovered/Resolved]
  - Cardiac failure [Recovered/Resolved with Sequelae]
  - Aortic valve incompetence [Unknown]
  - Bronchiectasis [Unknown]
  - Left ventricular dysfunction [Recovered/Resolved with Sequelae]
